FAERS Safety Report 8761530 (Version 1)
Quarter: 2012Q4

REPORT INFORMATION
  Report Type: 
  Country: US (occurrence: US)
  Receive Date: 20120829
  Receipt Date: 20120829
  Transmission Date: 20130627
  Serious: Yes (Other)
  Sender: FDA-Public Use
  Company Number: US-MYLANLABS-2012S1017229

PATIENT
  Age: 77 Year
  Sex: Female

DRUGS (2)
  1. SOTALOL [Suspect]
     Route: 048
     Dates: end: 201208
  2. TIKOSYN [Suspect]
     Dates: start: 201208, end: 201208

REACTIONS (2)
  - Torsade de pointes [Recovered/Resolved]
  - Drug interaction [Recovered/Resolved]
